FAERS Safety Report 5902124-6 (Version None)
Quarter: 2008Q3

REPORT INFORMATION
  Report Type: 
  Country: None (occurrence: None)
  Receive Date: 20080925
  Receipt Date: 20080911
  Transmission Date: 20090109
  Serious: Yes (Congenital Anomaly)
  Sender: FDA-Public Use
  Company Number: 2008BI024811

PATIENT
  Sex: Female
  Weight: 2.6944 kg

DRUGS (1)
  1. AVONEX [Suspect]
     Indication: MULTIPLE SCLEROSIS
     Dosage: 30 UG;QW;TRPL
     Route: 064
     Dates: start: 20040515, end: 20070815

REACTIONS (5)
  - CARDIAC MURMUR [None]
  - CEPHALHAEMATOMA [None]
  - MATERNAL DRUGS AFFECTING FOETUS [None]
  - MELANOCYTIC NAEVUS [None]
  - TORTICOLLIS [None]
